FAERS Safety Report 9361605 (Version 4)
Quarter: 2013Q3

REPORT INFORMATION
  Report Type: Spontaneous
  Country: US (occurrence: US)
  Receive Date: 20130621
  Receipt Date: 20130819
  Transmission Date: 20140515
  Serious: No
  Sender: FDA-Public Use
  Company Number: US-PFIZER INC-2013184724

PATIENT
  Age: 63 Year
  Sex: Male
  Weight: 92.97 kg

DRUGS (18)
  1. SUTENT [Suspect]
     Indication: METASTATIC RENAL CELL CARCINOMA
     Dosage: 50 MG, 28 DAYS ON AND 14 DAYS OFF
     Dates: start: 20130527
  2. PLAVIX [Concomitant]
     Dosage: 75 MG, DAILY
     Route: 048
  3. LASIX [Concomitant]
     Dosage: 20 MG, DAILY
  4. LOPRESSOR [Concomitant]
     Dosage: UNK
  5. LEXAPRO [Concomitant]
     Dosage: UNK
  6. ROZEREM [Concomitant]
     Indication: SLEEP DISORDER
     Dosage: UNK, AS NEEDED (PRN)
  7. XANAX [Concomitant]
     Dosage: UNK, AS NEEDED (PRN)
  8. VICODIN [Concomitant]
     Indication: BACK PAIN
     Dosage: UNK, AS NEEDED (PRN)
  9. XOPENEX [Concomitant]
     Indication: ASTHMA
     Dosage: UNK, AS NEEDED (PRN)
     Route: 055
  10. NASONEX [Concomitant]
     Dosage: 2 PUFFS, AS NEEDED (PRN)
  11. MIRALAX [Concomitant]
     Dosage: UNK
  12. VITAMIN B12 [Concomitant]
     Dosage: UNK
  13. VITAMIN D3 [Concomitant]
     Dosage: UNK
  14. VYTORIN [Concomitant]
     Dosage: UNK
  15. VITAMIN C [Concomitant]
     Dosage: UNK
  16. ASPIRIN [Concomitant]
     Dosage: 81 MG, DAILY
  17. COMPAZINE [Concomitant]
     Dosage: UNK, AS NEEDED (PRN)
  18. AVELOX [Concomitant]
     Dosage: UNK

REACTIONS (13)
  - Nausea [Recovering/Resolving]
  - Oral pain [Recovering/Resolving]
  - Headache [Unknown]
  - Dehydration [Unknown]
  - Dry skin [Unknown]
  - Chills [Unknown]
  - Sleep disorder [Unknown]
  - Psychiatric symptom [Unknown]
  - Dry mouth [Recovering/Resolving]
  - Hypoaesthesia oral [Unknown]
  - Chapped lips [Unknown]
  - Constipation [Unknown]
  - Mucosal inflammation [Recovering/Resolving]
